FAERS Safety Report 8281345-4 (Version None)
Quarter: 2012Q2

REPORT INFORMATION
  Report Type: 
  Country: None (occurrence: None)
  Receive Date: 20120413
  Receipt Date: 20120411
  Transmission Date: 20120825
  Serious: Yes (Other)
  Sender: FDA-Public Use
  Company Number: US-PFIZER INC-2012089880

PATIENT
  Sex: Female
  Weight: 74.83 kg

DRUGS (9)
  1. CHANTIX [Suspect]
     Indication: SMOKING CESSATION THERAPY
     Dosage: UNK
     Route: 048
     Dates: start: 20120101, end: 20120101
  2. SULFASALAZINE [Concomitant]
     Indication: CROHN'S DISEASE
     Dosage: UNK
  3. GLUCOSAMINE HYDROCHLORIDE/CHONDROITIN SULFATE [Concomitant]
     Dosage: UNK
  4. CHANTIX [Suspect]
     Dosage: 1 MG, 2X/DAY
     Route: 048
     Dates: start: 20120101
  5. LIBRAX [Concomitant]
     Indication: CROHN'S DISEASE
     Dosage: UNK
  6. PLAVIX [Concomitant]
     Indication: ANTICOAGULANT THERAPY
     Dosage: 75 MG, UNK
  7. ACCOLATE [Concomitant]
     Indication: CROHN'S DISEASE
     Dosage: UNK
  8. POTASSIUM [Concomitant]
     Dosage: UNK
  9. BUSPIRONE [Concomitant]
     Indication: NERVOUS SYSTEM DISORDER
     Dosage: 30 MG, 2X/DAY

REACTIONS (3)
  - CEREBROVASCULAR ACCIDENT [None]
  - IRRITABILITY [None]
  - TENSION [None]
